FAERS Safety Report 8422965-3 (Version None)
Quarter: 2012Q2

REPORT INFORMATION
  Report Type: 
  Country: None (occurrence: None)
  Receive Date: 20120608
  Receipt Date: 20120529
  Transmission Date: 20120825
  Serious: Yes (Hospitalization)
  Sender: FDA-Public Use
  Company Number: SG-VIIV HEALTHCARE LIMITED-B0806501A

PATIENT
  Age: 46 Year
  Sex: Male

DRUGS (1)
  1. ABACAVIR [Suspect]
     Indication: PRODUCT USED FOR UNKNOWN INDICATION
     Route: 065

REACTIONS (7)
  - COUGH [None]
  - DIZZINESS [None]
  - VOMITING [None]
  - NAUSEA [None]
  - DRUG HYPERSENSITIVITY [None]
  - PYREXIA [None]
  - HEADACHE [None]
